FAERS Safety Report 11440319 (Version 1)
Quarter: 2015Q3

REPORT INFORMATION
  Report Type: Spontaneous
  Country: US (occurrence: None)
  Receive Date: 20150831
  Receipt Date: 20150831
  Transmission Date: 20151125
  Serious: Yes (Other)
  Sender: FDA-Public Use
  Company Number: None

PATIENT
  Age: 31 Year
  Sex: Male
  Weight: 136.08 kg

DRUGS (2)
  1. REMERON [Suspect]
     Active Substance: MIRTAZAPINE
     Indication: DEPRESSION
  2. REMERON [Concomitant]
     Active Substance: MIRTAZAPINE

REACTIONS (4)
  - Vomiting [None]
  - Hyperhidrosis [None]
  - Depression [None]
  - Panic attack [None]

NARRATIVE: CASE EVENT DATE: 20150828
